FAERS Safety Report 5964158-5 (Version None)
Quarter: 2008Q4

REPORT INFORMATION
  Report Type: 
  Country: None (occurrence: None)
  Receive Date: 20081124
  Receipt Date: 20081112
  Transmission Date: 20090506
  Serious: No
  Sender: FDA-Public Use
  Company Number: US-B.I. PHARMACEUTICALS,INC./RIDGEFIELD-2007-BP-17848BP

PATIENT
  Sex: Male

DRUGS (7)
  1. SPIRIVA [Suspect]
     Indication: CHRONIC OBSTRUCTIVE PULMONARY DISEASE
     Dosage: 18MCG
     Route: 055
     Dates: start: 19950101, end: 20060901
  2. SPIRIVA [Suspect]
     Indication: EMPHYSEMA
  3. ADVAIR HFA [Concomitant]
     Indication: DYSPNOEA
  4. ALBUTEROL [Concomitant]
  5. SINGULAIR [Concomitant]
     Indication: DYSPNOEA
     Dosage: 10MG
  6. PENTOXIFYLLINE [Concomitant]
     Dosage: 400MG
  7. ZETIA [Concomitant]
     Dosage: 10MG

REACTIONS (2)
  - CONDITION AGGRAVATED [None]
  - DYSPNOEA [None]
